FAERS Safety Report 8082436-3 (Version None)
Quarter: 2012Q1

REPORT INFORMATION
  Report Type: 
  Country: None (occurrence: None)
  Receive Date: 20120127
  Receipt Date: 20110221
  Transmission Date: 20120608
  Serious: Yes (Other)
  Sender: FDA-Public Use
  Company Number: US-ABBOTT-11P-163-0706304-00

PATIENT
  Sex: Male
  Weight: 118.04 kg

DRUGS (6)
  1. HUMIRA [Suspect]
     Indication: PSORIATIC ARTHROPATHY
     Route: 058
     Dates: start: 20100101, end: 20101231
  2. MOBIC [Concomitant]
     Indication: PRODUCT USED FOR UNKNOWN INDICATION
  3. ARMODAFINIL [Suspect]
     Indication: FUNGAL INFECTION
     Route: 048
     Dates: start: 20110209, end: 20110209
  4. TRAZODONE HCL [Concomitant]
     Indication: PRODUCT USED FOR UNKNOWN INDICATION
  5. RANITIDINE [Concomitant]
     Indication: PRODUCT USED FOR UNKNOWN INDICATION
  6. HYDROCODONE BITARTRATE [Concomitant]
     Indication: PRODUCT USED FOR UNKNOWN INDICATION

REACTIONS (9)
  - FUNGAL INFECTION [None]
  - LOWER RESPIRATORY TRACT INFECTION FUNGAL [None]
  - PAIN [None]
  - EMOTIONAL DISTRESS [None]
  - BRONCHITIS FUNGAL [None]
  - RASH GENERALISED [None]
  - ORAL CANDIDIASIS [None]
  - STRESS [None]
  - COUGH [None]
